FAERS Safety Report 9036293 (Version 1)
Quarter: 2013Q1

REPORT INFORMATION
  Report Type: Report from Study
  Country: US (occurrence: US)
  Receive Date: 20130129
  Receipt Date: 20130129
  Transmission Date: 20140127
  Serious: No
  Sender: FDA-Public Use
  Company Number: US-ABBOTT-12P-163-0889000-00

PATIENT
  Age: 28 Year
  Sex: Male

DRUGS (5)
  1. HUMIRA 40 MG/0.8 ML PEN [Suspect]
     Indication: CROHN^S DISEASE
     Dates: start: 20111001
  2. PENTASA [Concomitant]
     Indication: PRODUCT USED FOR UNKNOWN INDICATION
  3. TRILEPTAL [Concomitant]
     Indication: BIPOLAR DISORDER
  4. RISPERIDONE [Concomitant]
     Indication: BIPOLAR DISORDER
  5. CLONAZEPAM [Concomitant]
     Indication: BIPOLAR DISORDER

REACTIONS (1)
  - Injection site pain [Recovered/Resolved]
